FAERS Safety Report 6541387-3 (Version None)
Quarter: 2010Q1

REPORT INFORMATION
  Report Type: 
  Country: None (occurrence: None)
  Receive Date: 20100118
  Receipt Date: 20100114
  Transmission Date: 20100710
  Serious: Yes (Death, Other)
  Sender: FDA-Public Use
  Company Number: PHHY2010RO01832

PATIENT
  Sex: Female

DRUGS (2)
  1. FEMARA [Suspect]
     Indication: BREAST CANCER
     Dosage: 2.5 MG, QD
  2. DIGOXIN [Concomitant]
     Dosage: 0.25 MG, UNK

REACTIONS (2)
  - CARDIAC FAILURE [None]
  - CARDIO-RESPIRATORY ARREST [None]
